FAERS Safety Report 7373644-5 (Version None)
Quarter: 2011Q1

REPORT INFORMATION
  Report Type: 
  Country: None (occurrence: None)
  Receive Date: 20110314
  Receipt Date: 20110302
  Transmission Date: 20110831
  Serious: Yes (Other)
  Sender: FDA-Public Use
  Company Number: 2011AP000395

PATIENT
  Age: 31 Year
  Sex: Male

DRUGS (5)
  1. RISPERIDONE [Suspect]
     Indication: SCHIZOPHRENIA
     Dosage: 10 MG;PO;QD
     Route: 048
     Dates: start: 20010101
  2. RISPERIDONE [Suspect]
     Indication: SCHIZOPHRENIA
     Dosage: 10 MG;PO;QD
     Route: 048
     Dates: start: 20080901
  3. CLOZARIL [Suspect]
     Indication: SCHIZOPHRENIA
     Dosage: 500MG,PO,QD
     Route: 048
     Dates: start: 20080901
  4. CLOZARIL [Suspect]
     Indication: SCHIZOPHRENIA
     Dosage: 500MG,PO,QD
     Route: 048
     Dates: start: 20010315
  5. FLUOXETINE HCL [Concomitant]

REACTIONS (1)
  - PLATELET COUNT DECREASED [None]
